FAERS Safety Report 25912643 (Version 3)
Quarter: 2025Q4

REPORT INFORMATION
  Report Type: Spontaneous
  Country: US (occurrence: US)
  Receive Date: 20251013
  Receipt Date: 20251122
  Transmission Date: 20260117
  Serious: No
  Sender: DR REDDYS
  Company Number: US-DRL-USA-USA/2025/08/013314

PATIENT
  Age: 68 Year
  Sex: Female
  Weight: 81.65 kg

DRUGS (1)
  1. CLONIDINE TRANSDERMAL SYSTEM USP, 0.1 MG/DAY [Suspect]
     Active Substance: CLONIDINE
     Indication: Hypertension
     Dosage: SERIAL NUMBER: 1YG4IZZX249C?ONCE WEEKLY TO PUT THE PATCH ON AND SHE HAS TO PUT ON HER UPPER ARM OR C
     Route: 062
     Dates: start: 20230623

REACTIONS (2)
  - Product adhesion issue [Not Recovered/Not Resolved]
  - Product dose omission issue [Unknown]

NARRATIVE: CASE EVENT DATE: 20250814
